FAERS Safety Report 6611808-6 (Version None)
Quarter: 2010Q1

REPORT INFORMATION
  Report Type: 
  Country: None (occurrence: None)
  Receive Date: 20100226
  Receipt Date: 20100226
  Transmission Date: 20100710
  Serious: Yes (Other)
  Sender: FDA-Public Use
  Company Number: None

PATIENT
  Age: 70 Year
  Sex: Male
  Weight: 83.9154 kg

DRUGS (2)
  1. GABAPENTIN [Suspect]
     Indication: PAIN IN EXTREMITY
     Dosage: 1200MH ONCE A DAY PO
     Route: 048
     Dates: start: 20091219, end: 20100210
  2. GABAPENTIN [Suspect]
     Indication: RESTLESS LEGS SYNDROME
     Dosage: 1200MH ONCE A DAY PO
     Route: 048
     Dates: start: 20091219, end: 20100210

REACTIONS (5)
  - ABDOMINAL DISCOMFORT [None]
  - PRODUCT FRIABLE [None]
  - PRODUCT QUALITY ISSUE [None]
  - PRODUCT SUBSTITUTION ISSUE [None]
  - VERTIGO [None]
